FAERS Safety Report 16989551 (Version 1)
Quarter: 2019Q4

REPORT INFORMATION
  Report Type: Spontaneous
  Country: JP (occurrence: JP)
  Receive Date: 20191104
  Receipt Date: 20191104
  Transmission Date: 20200122
  Serious: Yes (Other)
  Sender: FDA-Public Use
  Company Number: JP-PFIZER INC-2019465811

PATIENT
  Age: 43 Year
  Sex: Female

DRUGS (4)
  1. REXULTI [Suspect]
     Active Substance: BREXPIPRAZOLE
     Indication: MENIERE^S DISEASE
     Dosage: UNK
  2. MEILAX [Suspect]
     Active Substance: ETHYL LOFLAZEPATE
     Dosage: HALF TABLET OF 1 MG
  3. SOLANAX [Suspect]
     Active Substance: ALPRAZOLAM
     Dosage: UNK
  4. ABILIFY [Suspect]
     Active Substance: ARIPIPRAZOLE
     Dosage: 3 MG, UNK

REACTIONS (5)
  - Irritability [Unknown]
  - Refusal of treatment by patient [Unknown]
  - Intentional self-injury [Unknown]
  - Malaise [Unknown]
  - Myalgia [Unknown]
